FAERS Safety Report 7909149-X (Version None)
Quarter: 2011Q4

REPORT INFORMATION
  Report Type: 
  Country: None (occurrence: None)
  Receive Date: 20111111
  Receipt Date: 20110113
  Transmission Date: 20120403
  Serious: No
  Sender: FDA-Public Use
  Company Number: US-GLAXOSMITHKLINE-A0907017A

PATIENT
  Age: 71 Year
  Sex: Female

DRUGS (4)
  1. LISINOPRIL [Concomitant]
  2. COREG [Suspect]
     Indication: PRODUCT USED FOR UNKNOWN INDICATION
     Route: 048
     Dates: start: 20101101, end: 20100101
  3. DARVOCET [Suspect]
     Indication: PRODUCT USED FOR UNKNOWN INDICATION
     Route: 048
     Dates: start: 20101111, end: 20100101
  4. ESTROGENIC SUBSTANCE [Concomitant]

REACTIONS (4)
  - LOCAL SWELLING [None]
  - DYSPHAGIA [None]
  - THROAT TIGHTNESS [None]
  - OEDEMA PERIPHERAL [None]
